FAERS Safety Report 7356318-6 (Version None)
Quarter: 2011Q1

REPORT INFORMATION
  Report Type: 
  Country: None (occurrence: None)
  Receive Date: 20110316
  Receipt Date: 20110309
  Transmission Date: 20110831
  Serious: Yes (Death)
  Sender: FDA-Public Use
  Company Number: CN-ROCHE-693672

PATIENT
  Sex: Female
  Weight: 44 kg

DRUGS (12)
  1. METOPROLOL [Suspect]
     Indication: HYPERTENSION
     Route: 065
     Dates: start: 20061021
  2. AMLODIPINE MALEATE [Concomitant]
     Dates: start: 20100316
  3. AZITHROMYCIN [Concomitant]
     Dates: start: 20100316
  4. TOCILIZUMAB [Suspect]
     Dosage: THE PATIENT WAS PREVIOUSLY ENROLLED IN WA17824 AND WAS RECIEVING TOCILIZUMAB.
     Route: 042
  5. MOXIFLOXACIN [Concomitant]
     Dates: start: 20100320
  6. FUROSEMIDE [Concomitant]
     Dates: start: 20100312, end: 20100314
  7. LEVOFLOXACIN [Concomitant]
     Dates: start: 20100316
  8. KETOTIFEN FUMARATE [Concomitant]
     Dates: start: 20100316
  9. SPIRONOLACTONE [Concomitant]
     Dates: start: 20100312, end: 20100319
  10. TELMISARTAN [Concomitant]
     Dates: start: 20100316
  11. METHOXYPHENAMINE [Concomitant]
     Dates: start: 20100316
  12. TOCILIZUMAB [Suspect]
     Indication: RHEUMATOID ARTHRITIS
     Dosage: LAST DOSE PRIOR TO SAE 24 FEB 2010, ROUTE: INFUSION
     Route: 042
     Dates: start: 20070228, end: 20100324

REACTIONS (5)
  - PLEURAL EFFUSION [None]
  - SUDDEN DEATH [None]
  - PNEUMONIA [None]
  - MYOCARDIAL INFARCTION [None]
  - PULMONARY EMBOLISM [None]
